FAERS Safety Report 10158174 (Version 1)
Quarter: 2014Q2

REPORT INFORMATION
  Report Type: Spontaneous
  Country: US (occurrence: US)
  Receive Date: 20140507
  Receipt Date: 20140507
  Transmission Date: 20141212
  Serious: Yes (Other)
  Sender: FDA-Public Use
  Company Number: US-TEVA-479361USA

PATIENT
  Age: 66 Year
  Sex: Female
  Weight: 52.21 kg

DRUGS (6)
  1. AZILECT [Suspect]
     Indication: PARKINSON^S DISEASE
     Dates: start: 201401, end: 201404
  2. AZILECT [Suspect]
     Dosage: 1/2 OF 1 MILLIGRAM TABLET
     Dates: start: 201404
  3. CARBIDOPA/LEVODOPA [Concomitant]
     Indication: PARKINSON^S DISEASE
  4. REQUIP [Concomitant]
  5. LEVOTHYROXINE [Concomitant]
     Indication: HYPOTHYROIDISM
  6. PREDNISONE [Concomitant]
     Indication: DRUG HYPERSENSITIVITY
     Dosage: EVERY OTHER DAY
     Route: 048

REACTIONS (6)
  - Loss of consciousness [Recovered/Resolved]
  - Dry mouth [Not Recovered/Not Resolved]
  - Dyskinesia [Not Recovered/Not Resolved]
  - Speech disorder [Not Recovered/Not Resolved]
  - Hypotension [Not Recovered/Not Resolved]
  - Weight decreased [Not Recovered/Not Resolved]
